FAERS Safety Report 24848867 (Version 2)
Quarter: 2025Q1

REPORT INFORMATION
  Report Type: Report from Study
  Country: US (occurrence: US)
  Receive Date: 20250116
  Receipt Date: 20250129
  Transmission Date: 20250409
  Serious: Yes (Hospitalization, Other)
  Sender: ABBVIE
  Company Number: US-ABBVIE-6084312

PATIENT
  Age: 74 Year
  Sex: Female
  Weight: 67 kg

DRUGS (1)
  1. SKYRIZI [Suspect]
     Active Substance: RISANKIZUMAB-RZAA
     Indication: Psoriasis
     Route: 058
     Dates: start: 2023, end: 202408

REACTIONS (6)
  - Blood sodium decreased [Recovered/Resolved]
  - Arthralgia [Recovered/Resolved]
  - Psoriasis [Not Recovered/Not Resolved]
  - Rash papular [Not Recovered/Not Resolved]
  - Osteoarthritis [Recovered/Resolved]
  - Rash pruritic [Not Recovered/Not Resolved]

NARRATIVE: CASE EVENT DATE: 20230101
